FAERS Safety Report 8444086-6 (Version None)
Quarter: 2012Q2

REPORT INFORMATION
  Report Type: 
  Country: None (occurrence: None)
  Receive Date: 20120323
  Receipt Date: 20110708
  Transmission Date: 20120825
  Serious: Yes (Hospitalization)
  Sender: FDA-Public Use
  Company Number: 163-21880-11070778

PATIENT
  Age: 85 Year
  Sex: Female
  Weight: 73.5 kg

DRUGS (7)
  1. ZOMETA [Concomitant]
  2. VITAMIN B12 [Concomitant]
  3. REVLIMID [Suspect]
     Indication: MULTIPLE MYELOMA
     Dosage: 10 MG, 1 IN 1 D, PO
     Route: 048
     Dates: start: 20110610, end: 20110630
  4. PROCRIT [Concomitant]
  5. ACETAMINOPHEN [Concomitant]
  6. ASPIRIN [Concomitant]
  7. TRAMADOL HCL [Concomitant]

REACTIONS (1)
  - RENAL FAILURE [None]
